FAERS Safety Report 25594339 (Version 1)
Quarter: 2025Q3

REPORT INFORMATION
  Report Type: Spontaneous
  Country: US (occurrence: US)
  Receive Date: 20250723
  Receipt Date: 20250723
  Transmission Date: 20251021
  Serious: No
  Sender: GLAXOSMITHKLINE
  Company Number: US-GSK-US2025079297

PATIENT
  Age: 83 Year
  Sex: Male

DRUGS (9)
  1. TRELEGY ELLIPTA [Suspect]
     Active Substance: FLUTICASONE FUROATE\UMECLIDINIUM BROMIDE\VILANTEROL TRIFENATATE
     Indication: Prophylaxis
     Dosage: 1 PUFF(S), QD
  2. SAVAYSA [Concomitant]
     Active Substance: EDOXABAN TOSYLATE
     Indication: Atrial fibrillation
  3. FUROSEMIDE [Concomitant]
     Active Substance: FUROSEMIDE
     Indication: Product used for unknown indication
  4. ATORVASTATIN [Concomitant]
     Active Substance: ATORVASTATIN
     Indication: Product used for unknown indication
  5. NABUMETONE [Concomitant]
     Active Substance: NABUMETONE
     Indication: Joint swelling
  6. METOPROLOL [Concomitant]
     Active Substance: METOPROLOL
     Indication: Atrial fibrillation
  7. COENZYME Q10 [Concomitant]
     Active Substance: DIETARY SUPPLEMENT\UBIDECARENONE
     Indication: Product used for unknown indication
  8. FISH OIL [Concomitant]
     Active Substance: FISH OIL
     Indication: Product used for unknown indication
  9. PROSTATE 2.4 [Concomitant]
     Indication: Product used for unknown indication

REACTIONS (3)
  - Productive cough [Unknown]
  - Respiratory tract congestion [Unknown]
  - Off label use [Unknown]

NARRATIVE: CASE EVENT DATE: 20250624
